FAERS Safety Report 13247468 (Version 2)
Quarter: 2017Q1

REPORT INFORMATION
  Report Type: Report from Study
  Country: CA (occurrence: CA)
  Receive Date: 20170217
  Receipt Date: 20170310
  Transmission Date: 20170428
  Serious: Yes (Hospitalization, Other)
  Sender: FDA-Public Use
  Company Number: CA-TAKEDA-2017TUS003323

PATIENT
  Age: 27 Year
  Sex: Male

DRUGS (2)
  1. VEDOLIZUMAB [Suspect]
     Active Substance: VEDOLIZUMAB
     Indication: COLITIS ULCERATIVE
     Dosage: 300 MG, Q4WEEKS
     Route: 042
     Dates: start: 20160907
  2. DELATESTRYL [Concomitant]
     Active Substance: TESTOSTERONE ENANTHATE
     Dosage: UNK
     Dates: start: 201603

REACTIONS (2)
  - Off label use [Unknown]
  - Fistula [Unknown]

NARRATIVE: CASE EVENT DATE: 20160907
